FAERS Safety Report 4291943-0 (Version None)
Quarter: 2004Q1

REPORT INFORMATION
  Report Type: 
  Country: None (occurrence: None)
  Receive Date: 20040126
  Receipt Date: 20030917
  Transmission Date: 20041129
  Serious: No
  Sender: FDA-Public Use
  Company Number: USA030947537

PATIENT
  Age: 64 Year
  Sex: Male
  Weight: 77 kg

DRUGS (22)
  1. FORTEO [Suspect]
     Indication: OSTEOPOROSIS
     Dates: start: 20030828
  2. HUMALOG [Concomitant]
  3. CALCIUM [Concomitant]
  4. LANTUS [Concomitant]
  5. MEDROL [Concomitant]
  6. PLAVIX [Concomitant]
  7. ALLOPURINOL [Concomitant]
  8. SYNTHROID [Concomitant]
  9. NORVASC [Concomitant]
  10. IMDUR [Concomitant]
  11. DETROL [Concomitant]
  12. COLCHICINE [Concomitant]
  13. CYCLOSPORINE [Concomitant]
  14. TRAZADONE (TRAZODONE) [Concomitant]
  15. PREVACID [Concomitant]
  16. COMBIVENT [Concomitant]
  17. ACTONEL [Concomitant]
  18. LESCOL [Concomitant]
  19. ACCUVITE [Concomitant]
  20. BUMEX [Concomitant]
  21. HYDROCODONE [Concomitant]
  22. MIRALAX [Concomitant]

REACTIONS (1)
  - BLOOD CALCIUM INCREASED [None]
